FAERS Safety Report 11855269 (Version 2)
Quarter: 2015Q4

REPORT INFORMATION
  Report Type: Spontaneous
  Country: GB (occurrence: GB)
  Receive Date: 20151221
  Receipt Date: 20151221
  Transmission Date: 20160305
  Serious: Yes (Other)
  Sender: FDA-Public Use
  Company Number: GB-ACTAVIS-2015-27876

PATIENT
  Age: 77 Year
  Sex: Female
  Weight: 60.32 kg

DRUGS (4)
  1. FOLIC ACID. [Suspect]
     Active Substance: FOLIC ACID
     Indication: FOLATE DEFICIENCY
     Dosage: 5 MG, UNKNOWN
     Route: 048
  2. PHENYTOIN SODIUM. [Concomitant]
     Active Substance: PHENYTOIN SODIUM
     Indication: PRODUCT USED FOR UNKNOWN INDICATION
     Dosage: UNK, UNKNOWN
     Route: 065
  3. PANTOPRAZOLE SODIUM. [Suspect]
     Active Substance: PANTOPRAZOLE SODIUM
     Indication: HIATUS HERNIA
     Dosage: 40 MG, DAILY (AN HOUR BEFORE EATING BREAKFAST)
     Route: 048
  4. PRAVASTATIN SODIUM (UNKNOWN) [Suspect]
     Active Substance: PRAVASTATIN SODIUM
     Indication: BLOOD CHOLESTEROL INCREASED
     Dosage: 10 MG, UNKNOWN
     Route: 048

REACTIONS (16)
  - Swelling face [Unknown]
  - Abdominal distension [Not Recovered/Not Resolved]
  - Cough [Unknown]
  - Swollen tongue [Unknown]
  - Dyspnoea [Unknown]
  - Pyrexia [Unknown]
  - Stress urinary incontinence [Unknown]
  - Catarrh [Unknown]
  - Malaise [Unknown]
  - Hypersensitivity [Unknown]
  - Balance disorder [Not Recovered/Not Resolved]
  - Local swelling [Not Recovered/Not Resolved]
  - Muscle atrophy [Unknown]
  - Disorientation [Unknown]
  - Dyspepsia [Unknown]
  - Lip swelling [Unknown]

NARRATIVE: CASE EVENT DATE: 20151106
